FAERS Safety Report 11777386 (Version 1)
Quarter: 2015Q4

REPORT INFORMATION
  Report Type: Spontaneous
  Country: US (occurrence: None)
  Receive Date: 20151124
  Receipt Date: 20151124
  Transmission Date: 20160304
  Serious: Yes (Hospitalization)
  Sender: FDA-Public Use
  Company Number: None

PATIENT
  Age: 92 Year
  Sex: Female
  Weight: 73 kg

DRUGS (25)
  1. SPIRONOLACTONE 25 MG [Suspect]
     Active Substance: SPIRONOLACTONE
     Indication: HYPERTENSION
     Route: 048
  2. AMITRIPTYLINE [Concomitant]
     Active Substance: AMITRIPTYLINE
  3. CYANOCOBALAMIN. [Concomitant]
     Active Substance: CYANOCOBALAMIN
  4. NAPROXEN. [Concomitant]
     Active Substance: NAPROXEN
  5. ADVAIR HFA [Concomitant]
     Active Substance: FLUTICASONE PROPIONATE\SALMETEROL XINAFOATE
  6. FUROSEMIDE. [Concomitant]
     Active Substance: FUROSEMIDE
  7. NITROFURANTOIN. [Concomitant]
     Active Substance: NITROFURANTOIN
  8. LORAZEPAM. [Concomitant]
     Active Substance: LORAZEPAM
  9. ASPIRIN. [Concomitant]
     Active Substance: ASPIRIN
  10. DUONEBS [Concomitant]
  11. VICODIN [Concomitant]
     Active Substance: ACETAMINOPHEN\HYDROCODONE BITARTRATE
  12. GUAIFENESIN. [Concomitant]
     Active Substance: GUAIFENESIN
  13. SENNA [Concomitant]
     Active Substance: SENNA LEAF\SENNOSIDES\SENNOSIDES A AND B
  14. FERROUS SULFATE [Concomitant]
     Active Substance: FERROUS SULFATE\FERROUS SULFATE, DRIED
  15. LEVOFLOXACIN. [Concomitant]
     Active Substance: LEVOFLOXACIN
  16. CITALOPRAM [Concomitant]
     Active Substance: CITALOPRAM HYDROBROMIDE
  17. CRANBERRY. [Concomitant]
     Active Substance: CRANBERRY
  18. FLUTICASONE [Concomitant]
     Active Substance: FLUTICASONE\FLUTICASONE PROPIONATE
  19. DIGOXIN 125 MCG [Suspect]
     Active Substance: DIGOXIN
     Indication: ATRIAL FIBRILLATION
     Route: 048
  20. LISINOPRIL. [Concomitant]
     Active Substance: LISINOPRIL
  21. PRAMIPEXOLE. [Concomitant]
     Active Substance: PRAMIPEXOLE
  22. ESOMEPRAZOLE [Concomitant]
     Active Substance: ESOMEPRAZOLE
  23. COMBIVENT [Concomitant]
     Active Substance: ALBUTEROL SULFATE\IPRATROPIUM BROMIDE
  24. PREMARIN CREAM [Concomitant]
  25. DILTIAZEM [Concomitant]
     Active Substance: DILTIAZEM

REACTIONS (15)
  - Dyspnoea [None]
  - Electrocardiogram QRS complex prolonged [None]
  - Atelectasis [None]
  - Heart rate abnormal [None]
  - Bundle branch block [None]
  - Electrocardiogram PR prolongation [None]
  - Asthenia [None]
  - Oedema peripheral [None]
  - Hypoxia [None]
  - Bradycardia [None]
  - Wheezing [None]
  - Blood creatinine increased [None]
  - Malaise [None]
  - Hyperkalaemia [None]
  - Toxicity to various agents [None]

NARRATIVE: CASE EVENT DATE: 20151031
